FAERS Safety Report 10830098 (Version 1)
Quarter: 2015Q1

REPORT INFORMATION
  Report Type: Report from Study
  Country: US (occurrence: US)
  Receive Date: 20150219
  Receipt Date: 20150219
  Transmission Date: 20150721
  Serious: No
  Sender: FDA-Public Use
  Company Number: US-ABBVIE-14P-163-1190177-00

PATIENT
  Sex: Female

DRUGS (2)
  1. VIT B 12 [Concomitant]
     Indication: PRODUCT USED FOR UNKNOWN INDICATION
     Route: 058
  2. HUMIRA [Suspect]
     Active Substance: ADALIMUMAB
     Indication: CROHN^S DISEASE
     Route: 058
     Dates: start: 20131118

REACTIONS (5)
  - Crohn^s disease [Unknown]
  - Flushing [Unknown]
  - Incorrect dose administered [Unknown]
  - Menopause [Unknown]
  - Wrong technique in drug usage process [Unknown]
